FAERS Safety Report 11098383 (Version 2)
Quarter: 2015Q2

REPORT INFORMATION
  Report Type: Spontaneous
  Country: BR (occurrence: BR)
  Receive Date: 20150507
  Receipt Date: 20150522
  Transmission Date: 20150821
  Serious: Yes (Other)
  Sender: FDA-Public Use
  Company Number: PHHY2015BR055243

PATIENT
  Sex: Female
  Weight: 49 kg

DRUGS (8)
  1. DIOVAN [Interacting]
     Active Substance: VALSARTAN
     Indication: HYPERTENSION
     Dosage: 2 DF (TABLETS OF 320MG), QD
     Route: 048
  2. APRESOLIN [Suspect]
     Active Substance: HYDRALAZINE HYDROCHLORIDE
     Indication: HYPERTENSION
     Dosage: 2 DF (TABLETS OF 25MG), QD
     Route: 048
  3. DIOVAN [Interacting]
     Active Substance: VALSARTAN
     Dosage: 2 DF (TABLETS OF 320MG), QD
     Route: 048
  4. APRESOLIN [Suspect]
     Active Substance: HYDRALAZINE HYDROCHLORIDE
     Dosage: 2 DF (TABLETS OF 25MG), QD
     Route: 048
  5. INDAPAMIDE. [Concomitant]
     Active Substance: INDAPAMIDE
     Indication: HYPERTENSION
     Dosage: 1 DF, QD
     Route: 048
  6. DIOVAN [Interacting]
     Active Substance: VALSARTAN
     Dosage: 1 DF, QD
     Route: 048
  7. ZANIDIP [Concomitant]
     Active Substance: LERCANIDIPINE HYDROCHLORIDE
     Indication: HYPERTENSION
     Dosage: 1 DF, QD
     Route: 048
  8. APRESOLIN [Suspect]
     Active Substance: HYDRALAZINE HYDROCHLORIDE
     Dosage: 1 DF (50MG), QD
     Route: 048

REACTIONS (3)
  - Anuria [Recovered/Resolved]
  - Blood pressure increased [Recovered/Resolved]
  - Blood pressure decreased [Recovered/Resolved]
